FAERS Safety Report 5023878-X (Version None)
Quarter: 2006Q2

REPORT INFORMATION
  Report Type: 
  Country: None (occurrence: None)
  Receive Date: 20060607
  Receipt Date: 20060517
  Transmission Date: 20061013
  Serious: Yes (Other)
  Sender: FDA-Public Use
  Company Number: US200603006364

PATIENT
  Age: 73 Year
  Sex: Female
  Weight: 59.9 kg

DRUGS (8)
  1. FORTEO [Suspect]
     Indication: OSTEOPOROSIS
     Dosage: 20 UG, DAILY (1/D),
     Dates: start: 20050201
  2. EVISTA [Suspect]
     Dosage: ORAL
     Route: 048
     Dates: start: 20020101, end: 20060301
  3. FORTEO [Concomitant]
  4. SYNTHROID [Concomitant]
  5. COREG [Concomitant]
  6. LISINOPRIL [Concomitant]
  7. CALCIUM (CALCIUM) [Concomitant]
  8. ASA (ASPIRIN (ACETYLSALICYLIC ACID) [Concomitant]

REACTIONS (9)
  - BREAST CANCER FEMALE [None]
  - CORONARY ARTERY DISEASE [None]
  - EJECTION FRACTION DECREASED [None]
  - LYMPHADENOPATHY [None]
  - LYMPHADENOPATHY MEDIASTINAL [None]
  - MITRAL VALVE INCOMPETENCE [None]
  - PHARMACEUTICAL PRODUCT COMPLAINT [None]
  - SCOLIOSIS [None]
  - SUPRAVENTRICULAR TACHYCARDIA [None]
